FAERS Safety Report 13287046 (Version 1)
Quarter: 2017Q1

REPORT INFORMATION
  Report Type: Spontaneous
  Country: US (occurrence: US)
  Receive Date: 20170302
  Receipt Date: 20170302
  Transmission Date: 20170428
  Serious: Yes (Other)
  Sender: FDA-Public Use
  Company Number: US-ASTRAZENECA-2017SE20778

PATIENT
  Age: 57 Year
  Sex: Female
  Weight: 105.2 kg

DRUGS (6)
  1. SYMBICORT [Suspect]
     Active Substance: BUDESONIDE\FORMOTEROL FUMARATE DIHYDRATE
     Indication: EMPHYSEMA
     Dosage: 160/4.5 MCG ONE INHALATION TWICE A DAY
     Route: 055
     Dates: start: 2009
  2. SOTALOL. [Concomitant]
     Active Substance: SOTALOL
     Indication: CARDIAC DISORDER
     Route: 065
  3. SYMBICORT [Suspect]
     Active Substance: BUDESONIDE\FORMOTEROL FUMARATE DIHYDRATE
     Indication: CHRONIC OBSTRUCTIVE PULMONARY DISEASE
     Dosage: 160/4.5 MCG ONE INHALATION TWICE A DAY
     Route: 055
     Dates: start: 2009
  4. MEXILETINE [Concomitant]
     Active Substance: MEXILETINE
     Indication: CARDIAC DISORDER
     Route: 065
  5. ALBUTEROL INHALER [Concomitant]
     Active Substance: ALBUTEROL
     Indication: PROPHYLAXIS
     Dosage: AS REQUIRED
     Route: 055
  6. SPIRIVA [Concomitant]
     Active Substance: TIOTROPIUM BROMIDE MONOHYDRATE
     Indication: CHRONIC OBSTRUCTIVE PULMONARY DISEASE
     Dosage: DAILY
     Route: 055

REACTIONS (6)
  - Seizure [Unknown]
  - Pneumonia [Unknown]
  - Off label use [Unknown]
  - Ventricular tachycardia [Unknown]
  - Diabetes mellitus [Unknown]
  - Hypoglycaemia [Unknown]

NARRATIVE: CASE EVENT DATE: 2009
